FAERS Safety Report 11716440 (Version 1)
Quarter: 2015Q4

REPORT INFORMATION
  Report Type: Spontaneous
  Country: IT (occurrence: IT)
  Receive Date: 20151109
  Receipt Date: 20151109
  Transmission Date: 20160304
  Serious: Yes (Other)
  Sender: FDA-Public Use
  Company Number: IT-IMPAX LABORATORIES, INC-2015-IPXL-01107

PATIENT
  Age: 20 Year
  Sex: Female

DRUGS (2)
  1. MINOCYCLINE\MINOCYCLINE HYDROCHLORIDE [Suspect]
     Active Substance: MINOCYCLINE\MINOCYCLINE HYDROCHLORIDE
     Indication: ACNE
     Dosage: 100 MG, 1 /DAY
     Route: 065
  2. RETINOIDS FOR TREATMENT OF ACNE [Suspect]
     Active Substance: UNSPECIFIED INGREDIENT
     Indication: ACNE

REACTIONS (2)
  - Vitiligo [Unknown]
  - Subacute cutaneous lupus erythematosus [Recovered/Resolved]
